FAERS Safety Report 5573217-0 (Version None)
Quarter: 2007Q4

REPORT INFORMATION
  Report Type: 
  Country: None (occurrence: None)
  Receive Date: 20071220
  Receipt Date: 20071205
  Transmission Date: 20080405
  Serious: Yes (Disabling)
  Sender: FDA-Public Use
  Company Number: 100#08#2007-05086

PATIENT
  Age: 32 Year
  Sex: Male

DRUGS (5)
  1. CISPLATIN [Suspect]
     Indication: TESTIS CANCER
     Dosage: 20 MG/M2 ON DAYS 1-5, THREE CYCLES
  2. CARBOPLATIN [Suspect]
     Indication: TESTIS CANCER
     Dosage: ONE CYCLE
  3. ETOPOSIDE [Suspect]
     Indication: TESTIS CANCER
     Dosage: 100 MG/M2 ON DAYS 1-5, 1500 MG/M2, THREE CYCLES, ONE CYCLE, THREE CYCLES
  4. BLEOMYCIN (BLEOMYCIN) (BLEOMYCIN) [Suspect]
     Indication: TESTIS CANCER
     Dosage: 30 MG/TOTAL DOSE ON DAYS 1, 8 AND 15 THREE CYCLES
  5. IFOSFAMIDE (IFOSFAMIDE) (IFOSFAMIDE) [Suspect]
     Indication: TESTIS CANCER
     Dosage: 7.5 G/M2 ONE CYCLE

REACTIONS (1)
  - AZOOSPERMIA [None]
